FAERS Safety Report 4701456-7 (Version None)
Quarter: 2005Q2

REPORT INFORMATION
  Report Type: 
  Country: None (occurrence: None)
  Receive Date: 20050627
  Receipt Date: 20050615
  Transmission Date: 20051028
  Serious: Yes (Hospitalization, Other)
  Sender: FDA-Public Use
  Company Number: HQWYE482815JUN05

PATIENT
  Age: 32 Year
  Sex: Male

DRUGS (8)
  1. RAPAMUNE [Suspect]
     Indication: PROPHYLAXIS AGAINST TRANSPLANT REJECTION
     Dosage: 2 MG ALTERNATING WITH 3 MG DAILY ORAL
     Route: 048
     Dates: start: 20040729
  2. LIPITOR [Concomitant]
  3. CLONIDINE [Concomitant]
  4. OMEPRAZOLE [Concomitant]
  5. AZATHIOPRINE [Concomitant]
  6. PREDNISONE [Concomitant]
  7. TRANDOLAPRIL (TRANDOLAPRIL) [Concomitant]
  8. WARFARIN SODIUM [Concomitant]

REACTIONS (4)
  - BLOOD POTASSIUM DECREASED [None]
  - BLOOD UREA DECREASED [None]
  - CHEST PAIN [None]
  - EMBOLISM [None]
